FAERS Safety Report 5627068-9 (Version None)
Quarter: 2008Q1

REPORT INFORMATION
  Report Type: 
  Country: None (occurrence: None)
  Receive Date: 20080115
  Receipt Date: 20071112
  Transmission Date: 20080703
  Serious: Yes (Other)
  Sender: FDA-Public Use
  Company Number: 2007081185

PATIENT
  Sex: Female

DRUGS (1)
  1. HALCION [Suspect]

REACTIONS (1)
  - AMNESIA [None]
